FAERS Safety Report 19179695 (Version 2)
Quarter: 2022Q2

REPORT INFORMATION
  Report Type: Spontaneous
  Country: GB (occurrence: GB)
  Receive Date: 20210426
  Receipt Date: 20220523
  Transmission Date: 20220720
  Serious: Yes (Other)
  Sender: FDA-Public Use
  Company Number: None

PATIENT
  Age: 37 Year
  Sex: Female
  Weight: 89 kg

DRUGS (1)
  1. FRAGMIN [Suspect]
     Active Substance: DALTEPARIN SODIUM
     Indication: Body mass index increased
     Dosage: 5,000IU/0.2ML
     Route: 051
     Dates: start: 20210220, end: 20210403

REACTIONS (14)
  - Medication error [Unknown]
  - Rash [Not Recovered/Not Resolved]
  - Tongue discomfort [Not Recovered/Not Resolved]
  - Constipation [Unknown]
  - Skin ulcer [Unknown]
  - Erythema [Unknown]
  - Skin infection [Unknown]
  - Skin lesion [Unknown]
  - Scratch [Unknown]
  - Injection site rash [Unknown]
  - Gastrointestinal disorder [Unknown]
  - Dyschezia [Unknown]
  - Maternal exposure during pregnancy [Unknown]
  - Off label use [Unknown]

NARRATIVE: CASE EVENT DATE: 20210220
